FAERS Safety Report 15185982 (Version 1)
Quarter: 2018Q3

REPORT INFORMATION
  Report Type: Report from Study
  Country: US (occurrence: US)
  Receive Date: 20180723
  Receipt Date: 20180723
  Transmission Date: 20181010
  Serious: No
  Sender: FDA-Public Use
  Company Number: US-EXELIXIS-CABO-17011844

PATIENT
  Sex: Female

DRUGS (26)
  1. PROTONIX [Concomitant]
     Active Substance: PANTOPRAZOLE SODIUM
  2. MELATONIN [Concomitant]
     Active Substance: MELATONIN
  3. MEGACE [Concomitant]
     Active Substance: MEGESTROL ACETATE
  4. MUCINEX D [Concomitant]
     Active Substance: GUAIFENESIN\PSEUDOEPHEDRINE HYDROCHLORIDE
  5. REMERON [Concomitant]
     Active Substance: MIRTAZAPINE
  6. LINZESS [Concomitant]
     Active Substance: LINACLOTIDE
  7. KLONOPIN [Concomitant]
     Active Substance: CLONAZEPAM
  8. MIRALAX [Concomitant]
     Active Substance: POLYETHYLENE GLYCOL 3350
  9. PLAVIX [Concomitant]
     Active Substance: CLOPIDOGREL BISULFATE
  10. LISINOPRIL. [Concomitant]
     Active Substance: LISINOPRIL
  11. DEXAMETHASON [Concomitant]
     Active Substance: DEXAMETHASONE
  12. FLEXERIL [Concomitant]
     Active Substance: CYCLOBENZAPRINE HYDROCHLORIDE
  13. COMETRIQ [Suspect]
     Active Substance: CABOZANTINIB S-MALATE
     Indication: RENAL CANCER
     Dosage: 40 MG, QD
     Route: 048
     Dates: start: 20170822, end: 201709
  14. ESTRACE [Concomitant]
     Active Substance: ESTRADIOL
  15. FLOMAX [Concomitant]
     Active Substance: TAMSULOSIN HYDROCHLORIDE
  16. GLUCOPHAGE [Concomitant]
     Active Substance: METFORMIN HYDROCHLORIDE
  17. TRAMADOL. [Concomitant]
     Active Substance: TRAMADOL
  18. PRENATAL [Concomitant]
     Active Substance: VITAMINS
  19. LIPITOR [Concomitant]
     Active Substance: ATORVASTATIN CALCIUM
  20. SEROQUEL [Concomitant]
     Active Substance: QUETIAPINE FUMARATE
  21. COMETRIQ [Suspect]
     Active Substance: CABOZANTINIB S-MALATE
     Dosage: 60 MG, QD
     Route: 048
     Dates: start: 201709, end: 201710
  22. LASIX [Concomitant]
     Active Substance: FUROSEMIDE
  23. SLOW?MAG [Concomitant]
     Active Substance: MAGNESIUM CHLORIDE
  24. ARICEPT [Concomitant]
     Active Substance: DONEPEZIL HYDROCHLORIDE
  25. ZOFRAN [Concomitant]
     Active Substance: ONDANSETRON HYDROCHLORIDE
  26. COMETRIQ [Suspect]
     Active Substance: CABOZANTINIB S-MALATE
     Dosage: 40 MG, QD
     Route: 048
     Dates: start: 201710

REACTIONS (2)
  - Off label use [Unknown]
  - Influenza [Unknown]
